FAERS Safety Report 6056518-1 (Version None)
Quarter: 2009Q1

REPORT INFORMATION
  Report Type: 
  Country: None (occurrence: None)
  Receive Date: 20090129
  Receipt Date: 20080611
  Transmission Date: 20090719
  Serious: No
  Sender: FDA-Public Use
  Company Number: A0732436A

PATIENT
  Age: 48 Year
  Sex: Female

DRUGS (5)
  1. COMBIVIR [Suspect]
     Indication: HIV INFECTION
     Dosage: 1TAB TWICE PER DAY
     Route: 048
     Dates: start: 19980301
  2. VIRACEPT [Concomitant]
  3. LIPITOR [Concomitant]
     Dates: end: 20080606
  4. CALCIUM [Concomitant]
  5. VIT D [Concomitant]

REACTIONS (1)
  - MUSCULAR WEAKNESS [None]
